FAERS Safety Report 7917394-2 (Version None)
Quarter: 2011Q4

REPORT INFORMATION
  Report Type: 
  Country: None (occurrence: None)
  Receive Date: 20111116
  Receipt Date: 20111109
  Transmission Date: 20120403
  Serious: Yes (Hospitalization)
  Sender: FDA-Public Use
  Company Number: FR-SANOFI-AVENTIS-2011SA073662

PATIENT
  Age: 64 Year
  Sex: Male

DRUGS (6)
  1. NEBIVOLOL HCL [Concomitant]
     Route: 065
  2. PLAVIX [Concomitant]
     Route: 065
  3. ADANCOR [Concomitant]
     Route: 065
  4. CALCIUM CARBONATE [Concomitant]
     Route: 065
  5. TAXOTERE [Suspect]
     Route: 042
     Dates: start: 20100301, end: 20110701
  6. OMEPRAZOLE [Concomitant]
     Route: 065

REACTIONS (1)
  - RENAL FAILURE CHRONIC [None]
